FAERS Safety Report 9809668 (Version 3)
Quarter: 2015Q4

REPORT INFORMATION
  Report Type: Spontaneous
  Country: US (occurrence: US)
  Receive Date: 20140110
  Receipt Date: 20151228
  Transmission Date: 20160305
  Serious: Yes (Other)
  Sender: FDA-Public Use
  Company Number: US-SANOFI-AVENTIS-2012SA022216

PATIENT
  Age: 77 Year
  Sex: Male

DRUGS (4)
  1. ASPIRIN. [Concomitant]
     Active Substance: ASPIRIN
     Dates: start: 1984, end: 2001
  2. PLAVIX [Suspect]
     Active Substance: CLOPIDOGREL BISULFATE
     Indication: PROPHYLAXIS
     Route: 048
     Dates: start: 2001, end: 2011
  3. ASPIRIN. [Concomitant]
     Active Substance: ASPIRIN
     Dates: start: 2001
  4. PLAVIX [Suspect]
     Active Substance: CLOPIDOGREL BISULFATE
     Indication: STENT PLACEMENT
     Route: 048
     Dates: start: 2001, end: 2011

REACTIONS (6)
  - Asthenia [Unknown]
  - Chest pain [Unknown]
  - Angina pectoris [Unknown]
  - Anaemia [Unknown]
  - Dizziness [Unknown]
  - Gastrointestinal haemorrhage [Not Recovered/Not Resolved]

NARRATIVE: CASE EVENT DATE: 20100406
